FAERS Safety Report 20713926 (Version 1)
Quarter: 2022Q2

REPORT INFORMATION
  Report Type: Other
  Country: IN (occurrence: None)
  Receive Date: 20220415
  Receipt Date: 20220415
  Transmission Date: 20220720
  Serious: Yes (Other)
  Sender: FDA-Public Use
  Company Number: IN-ROCHE-3069894

PATIENT
  Age: 65 Year
  Sex: Female

DRUGS (1)
  1. TECENTRIQ [Suspect]
     Active Substance: ATEZOLIZUMAB
     Indication: Product used for unknown indication
     Route: 042

REACTIONS (4)
  - Back pain [Unknown]
  - Cough [Unknown]
  - Decreased appetite [Unknown]
  - Weight decreased [Unknown]
